FAERS Safety Report 13741465 (Version 4)
Quarter: 2018Q4

REPORT INFORMATION
  Report Type: Spontaneous
  Country: CH (occurrence: CH)
  Receive Date: 20170711
  Receipt Date: 20181020
  Transmission Date: 20190204
  Serious: Yes (Hospitalization, Congenital Anomaly, Other)
  Sender: FDA-Public Use
  Company Number: CH-AMGEN-CHESP2017102056

PATIENT
  Age: 0 Day
  Sex: Female
  Weight: 1.95 kg

DRUGS (21)
  1. NEUPOGEN [Suspect]
     Active Substance: FILGRASTIM
     Dosage: 30 MILLION IU, QD (FOR 5 DAYS)
     Route: 064
     Dates: start: 20160907, end: 20160911
  2. CYCLOPHOSPHAMIDE ANHYDROUS. [Suspect]
     Active Substance: CYCLOPHOSPHAMIDE ANHYDROUS
     Indication: PRODUCT USED FOR UNKNOWN INDICATION
     Dosage: 1000 MG, Q2WK (600 MG/M2, ADMINISTERED ON DAY 1 OF EACH CHEMO CYCLE)
     Route: 064
     Dates: start: 20160822, end: 20161004
  3. SOLU-MEDROL [Concomitant]
     Active Substance: METHYLPREDNISOLONE SODIUM SUCCINATE
     Dosage: 125 MG, UNK
     Route: 064
     Dates: start: 20160906
  4. NEUPOGEN [Suspect]
     Active Substance: FILGRASTIM
     Indication: PRODUCT USED FOR UNKNOWN INDICATION
     Dosage: 30 MILLION IU, QD (FOR 5 DAYS)
     Route: 064
     Dates: start: 20160825, end: 20160829
  5. ZANTAC [Concomitant]
     Active Substance: RANITIDINE HYDROCHLORIDE
     Indication: PRODUCT USED FOR UNKNOWN INDICATION
     Dosage: 50 MG, QWK
     Route: 064
     Dates: start: 20161017, end: 20161227
  6. SOLU-MEDROL [Concomitant]
     Active Substance: METHYLPREDNISOLONE SODIUM SUCCINATE
     Indication: PRODUCT USED FOR UNKNOWN INDICATION
     Dosage: 125 MG, UNK
     Route: 064
     Dates: start: 20160822
  7. ZOFRAN [Concomitant]
     Active Substance: ONDANSETRON HYDROCHLORIDE
     Dosage: 4 MG, UNK (ADMINISTRATION ON DAYS 2 AND 3 OF EACH CYCLE OF CHEMOTHERAPY)
     Route: 064
     Dates: start: 20160823, end: 20161006
  8. TAVEGYL [Concomitant]
     Active Substance: CLEMASTINE FUMARATE
     Indication: PRODUCT USED FOR UNKNOWN INDICATION
     Dosage: 2 MG, QWK
     Route: 064
     Dates: start: 20161017, end: 20161227
  9. LAMICTAL [Suspect]
     Active Substance: LAMOTRIGINE
     Indication: PRODUCT USED FOR UNKNOWN INDICATION
     Dosage: 100 MG, BID
     Route: 064
     Dates: start: 2016
  10. SOLU-MEDROL [Concomitant]
     Active Substance: METHYLPREDNISOLONE SODIUM SUCCINATE
     Dosage: 125 MG, UNK
     Route: 064
     Dates: start: 20161004
  11. ZOFRAN [Concomitant]
     Active Substance: ONDANSETRON HYDROCHLORIDE
     Dosage: 8 MG, UNK
     Route: 064
     Dates: start: 20160906
  12. ZOFRAN [Concomitant]
     Active Substance: ONDANSETRON HYDROCHLORIDE
     Dosage: 8 MG, UNK
     Route: 064
     Dates: start: 20161004
  13. NEUPOGEN [Suspect]
     Active Substance: FILGRASTIM
     Dosage: 30 MILLION IU, QD (FOR 5 DAYS)
     Route: 064
     Dates: start: 20161001, end: 20161005
  14. DOXORUBICIN [Suspect]
     Active Substance: DOXORUBICIN
     Indication: PRODUCT USED FOR UNKNOWN INDICATION
     Dosage: 60 MG/M2, Q2WK (ADMINISTERED ON DAY 1 OF EACH CHEMO CYCLE)
     Route: 064
     Dates: start: 20160822, end: 20161004
  15. TAXOL [Suspect]
     Active Substance: PACLITAXEL
     Indication: PRODUCT USED FOR UNKNOWN INDICATION
     Dosage: 150 MG, QWK (80 MG/M2, 11 ADMINISTRATIONS IN TOTAL)
     Route: 064
     Dates: start: 20161017, end: 20161227
  16. SOLU-MEDROL [Concomitant]
     Active Substance: METHYLPREDNISOLONE SODIUM SUCCINATE
     Dosage: 125 MG, UNK
     Route: 064
     Dates: start: 20160920
  17. NEUPOGEN [Suspect]
     Active Substance: FILGRASTIM
     Dosage: 30 MILLION IU, QD (FOR 5 DAYS)
     Route: 064
     Dates: start: 20160921, end: 20160925
  18. ZOFRAN [Concomitant]
     Active Substance: ONDANSETRON HYDROCHLORIDE
     Indication: PRODUCT USED FOR UNKNOWN INDICATION
     Dosage: 8 MG, UNK
     Route: 064
     Dates: start: 20160822
  19. EMEND [Concomitant]
     Active Substance: APREPITANT
     Indication: PRODUCT USED FOR UNKNOWN INDICATION
     Dosage: 125 MG (ADMINISTRATION OF A SINGLE DOSE ON DAY 1 OF EACH CYCLE OF CHEMOTHERAPY)
     Route: 064
     Dates: start: 20160822, end: 20161004
  20. EMEND [Concomitant]
     Active Substance: APREPITANT
     Dosage: 80 MG (ADMINISTRATION ON DAYS 2 AND 3 OF EACH CYCLE OF CHEMOTHERAPY)
     Route: 064
     Dates: start: 20160823, end: 20161006
  21. PRIMPERAN [Concomitant]
     Active Substance: METOCLOPRAMIDE HYDROCHLORIDE
     Indication: PRODUCT USED FOR UNKNOWN INDICATION
     Dosage: UNK
     Route: 064
     Dates: start: 20160822, end: 20161227

REACTIONS (4)
  - Neonatal respiratory distress syndrome [Recovered/Resolved]
  - Premature baby [Recovered/Resolved]
  - Haemangioma of skin [Not Recovered/Not Resolved]
  - Hyperbilirubinaemia neonatal [Recovered/Resolved]

NARRATIVE: CASE EVENT DATE: 20161229
